FAERS Safety Report 14571856 (Version 2)
Quarter: 2018Q1

REPORT INFORMATION
  Report Type: Spontaneous
  Country: US (occurrence: US)
  Receive Date: 20180226
  Receipt Date: 20180227
  Transmission Date: 20180509
  Serious: No
  Sender: FDA-Public Use
  Company Number: US-PFIZER INC-2018078183

PATIENT
  Age: 8 Year
  Sex: Male
  Weight: 18.14 kg

DRUGS (1)
  1. QUILLIVANT XR [Suspect]
     Active Substance: METHYLPHENIDATE HYDROCHLORIDE
     Indication: PSYCHOMOTOR HYPERACTIVITY
     Dosage: UNK
     Route: 048
     Dates: start: 201708

REACTIONS (3)
  - Aggression [Unknown]
  - Irritability [Unknown]
  - Hunger [Unknown]
